FAERS Safety Report 9794326 (Version 1)
Quarter: 2014Q1

REPORT INFORMATION
  Report Type: Spontaneous
  Country: US (occurrence: US)
  Receive Date: 20140102
  Receipt Date: 20140102
  Transmission Date: 20141002
  Serious: Yes (Other)
  Sender: FDA-Public Use
  Company Number: US-PFIZER INC-2014000227

PATIENT
  Age: 60 Year
  Sex: Female
  Weight: 100 kg

DRUGS (3)
  1. NEURONTIN [Suspect]
     Indication: CONVULSION
     Dosage: 1200MG IN THE MORNING, 800MG IN THE AFTERNOON AND 1200MG AT BED TIME, (3X/DAY)
     Dates: start: 1998
  2. DILANTIN [Suspect]
     Indication: CONVULSION
     Dosage: 200MG IN THE MORNING AND 200 MG AT BED TIME AND 100MG IN AFTERNOON, (3X/DAY)
     Dates: start: 1998
  3. SYNTHROID [Concomitant]
     Indication: THYROID NEOPLASM
     Dosage: 0.1 MG, 1X/DAY

REACTIONS (1)
  - Myocardial infarction [Recovered/Resolved]
